FAERS Safety Report 6701483-4 (Version None)
Quarter: 2010Q2

REPORT INFORMATION
  Report Type: 
  Country: None (occurrence: None)
  Receive Date: 20100429
  Receipt Date: 20100420
  Transmission Date: 20101027
  Serious: Yes (Other)
  Sender: FDA-Public Use
  Company Number: ES-JNJFOC-20100403377

PATIENT
  Age: 54 Year
  Sex: Male
  Weight: 104 kg

DRUGS (5)
  1. STELARA [Suspect]
     Indication: PSORIASIS
     Route: 058
     Dates: start: 20090914
  2. STELARA [Suspect]
     Route: 058
     Dates: start: 20090914
  3. CARVEDILOL [Concomitant]
     Indication: DRUG USE FOR UNKNOWN INDICATION
  4. FLECAINIDE ACETATE [Concomitant]
  5. ASPIRIN [Concomitant]

REACTIONS (2)
  - PSORIASIS [None]
  - WEIGHT DECREASED [None]
